FAERS Safety Report 4520337-5 (Version None)
Quarter: 2004Q4

REPORT INFORMATION
  Report Type: 
  Country: None (occurrence: None)
  Receive Date: 20041207
  Receipt Date: 20041102
  Transmission Date: 20050328
  Serious: Yes (Hospitalization)
  Sender: FDA-Public Use
  Company Number: 2004JP001901

PATIENT
  Age: 48 Year
  Sex: Female
  Weight: 43.8 kg

DRUGS (5)
  1. SAWACILLIN [Suspect]
     Indication: BRONCHITIS
     Dosage: 1000MG PER DAY
     Route: 048
     Dates: start: 20040922, end: 20040924
  2. NIPOLAZIN [Suspect]
     Route: 048
     Dates: start: 20040922, end: 20040924
  3. MARZULENE [Concomitant]
     Dates: start: 20040922, end: 20040924
  4. ASTOMIN [Concomitant]
     Dates: start: 20040922, end: 20040924
  5. BISOLVON [Concomitant]
     Dates: start: 20040922, end: 20040924

REACTIONS (8)
  - ALANINE AMINOTRANSFERASE INCREASED [None]
  - ASPARTATE AMINOTRANSFERASE INCREASED [None]
  - BLOOD ALKALINE PHOSPHATASE INCREASED [None]
  - BLOOD BILIRUBIN INCREASED [None]
  - BLOOD LACTATE DEHYDROGENASE INCREASED [None]
  - CHEST PAIN [None]
  - HEPATITIS ACUTE [None]
  - LIVER DISORDER [None]
